FAERS Safety Report 10733913 (Version 2)
Quarter: 2015Q1

REPORT INFORMATION
  Report Type: Spontaneous
  Country: US (occurrence: US)
  Receive Date: 20150123
  Receipt Date: 20150128
  Transmission Date: 20150721
  Serious: No
  Sender: FDA-Public Use
  Company Number: US-009507513-1501USA005123

PATIENT
  Age: 16 Year
  Sex: Female
  Weight: 60.77 kg

DRUGS (1)
  1. IMPLANON [Suspect]
     Active Substance: ETONOGESTREL
     Indication: MENSTRUAL DISORDER
     Dosage: 1 IMPLANT, 3 YEARS, LEFT ARM
     Route: 059
     Dates: start: 20120825

REACTIONS (2)
  - Drug ineffective for unapproved indication [Unknown]
  - Unintended pregnancy [Unknown]
